FAERS Safety Report 13458226 (Version 2)
Quarter: 2017Q2

REPORT INFORMATION
  Report Type: Spontaneous
  Country: GB (occurrence: GB)
  Receive Date: 20170419
  Receipt Date: 20170505
  Transmission Date: 20170830
  Serious: Yes (Life-Threatening, Other)
  Sender: FDA-Public Use
  Company Number: GB-PFIZER INC-2017172367

PATIENT
  Age: 36 Year
  Sex: Male

DRUGS (3)
  1. ETOPOSIDE. [Suspect]
     Active Substance: ETOPOSIDE
     Indication: TESTICULAR GERM CELL TUMOUR MIXED
     Dosage: UNK UNK, CYCLIC (TWO CYCLES)
     Dates: start: 2004, end: 200409
  2. BLEOMYCIN SULFATE [Suspect]
     Active Substance: BLEOMYCIN SULFATE
     Indication: TESTICULAR GERM CELL TUMOUR MIXED
     Dosage: UNK UNK, CYCLIC (TWO CYCLES)
     Dates: start: 2004, end: 200409
  3. CISPLATIN. [Suspect]
     Active Substance: CISPLATIN
     Indication: TESTICULAR GERM CELL TUMOUR MIXED
     Dosage: UNK UNK, CYCLIC (TWO CYCLES)
     Dates: start: 2004, end: 200409

REACTIONS (2)
  - Second primary malignancy [Recovered/Resolved]
  - Papillary thyroid cancer [Recovered/Resolved]

NARRATIVE: CASE EVENT DATE: 200908
